FAERS Safety Report 13664504 (Version 1)
Quarter: 2017Q2

REPORT INFORMATION
  Report Type: Spontaneous
  Country: GR (occurrence: GR)
  Receive Date: 20170619
  Receipt Date: 20170619
  Transmission Date: 20170830
  Serious: Yes (Other)
  Sender: FDA-Public Use
  Company Number: GR-PFIZER INC-2017265993

PATIENT
  Age: 75 Year
  Sex: Female

DRUGS (2)
  1. NORVASC [Suspect]
     Active Substance: AMLODIPINE BESYLATE
     Indication: BLOOD PRESSURE MEASUREMENT
     Dosage: 5 MG, 1X/DAY (AT NIGHT)
  2. APROVEL [Concomitant]
     Active Substance: IRBESARTAN
     Dosage: 1X/DAY (IN THE MORNING)

REACTIONS (4)
  - Atrial fibrillation [Unknown]
  - Blood pressure decreased [Unknown]
  - Influenza [Unknown]
  - Colon cancer [Not Recovered/Not Resolved]

NARRATIVE: CASE EVENT DATE: 2013
